FAERS Safety Report 24541370 (Version 1)
Quarter: 2024Q4

REPORT INFORMATION
  Report Type: Spontaneous
  Country: US (occurrence: None)
  Receive Date: 20241023
  Receipt Date: 20241023
  Transmission Date: 20250115
  Serious: Yes (Life-Threatening, Hospitalization, Disabling)
  Sender: Public
  Company Number: None

PATIENT
  Age: 34 Year
  Sex: Male
  Weight: 78.3 kg

DRUGS (9)
  1. OXBRYTA [Suspect]
     Active Substance: VOXELOTOR
     Indication: Sickle cell anaemia
     Dosage: OTHER QUANTITY : 3 CAPSULE(S);?FREQUENCY : DAILY;?
     Route: 048
  2. dignity power port folic acid [Concomitant]
  3. HYDROXYUREA [Concomitant]
     Active Substance: HYDROXYUREA
  4. OXYCONTIN [Concomitant]
     Active Substance: OXYCODONE HYDROCHLORIDE
  5. OXYCODONE [Concomitant]
     Active Substance: OXYCODONE
  6. RIVAROXABAN [Concomitant]
     Active Substance: RIVAROXABAN
  7. senna kot [Concomitant]
  8. b12 [Concomitant]
  9. HERBALS\TURMERIC [Concomitant]
     Active Substance: HERBALS\TURMERIC

REACTIONS (3)
  - Hyperkalaemia [None]
  - Haemoglobin decreased [None]
  - Red blood cell count decreased [None]

NARRATIVE: CASE EVENT DATE: 20240406
